FAERS Safety Report 7860487-9 (Version None)
Quarter: 2011Q4

REPORT INFORMATION
  Report Type: 
  Country: None (occurrence: None)
  Receive Date: 20111027
  Receipt Date: 20111020
  Transmission Date: 20120403
  Serious: No
  Sender: FDA-Public Use
  Company Number: US-JNJFOC-2001086403US

PATIENT
  Sex: Female
  Weight: 56.7 kg

DRUGS (5)
  1. ROGAINE (FOR WOMEN) [Suspect]
     Indication: HAIR GROWTH ABNORMAL
     Dosage: FREQUENCY TEXT: QD DAILY DOSE TEXT: 1 MILLILITERS, QD DAILY DOSE QTY: 1 MILLILITERS FOR 15 YEARS
     Route: 061
     Dates: start: 19960101
  2. AMLODIPINE [Concomitant]
     Route: 065
  3. TOPICAL PREPARATIONS [Concomitant]
     Indication: SKIN DISORDER
     Route: 061
  4. ALLEGRA [Concomitant]
  5. ROGAINE (FOR WOMEN) [Suspect]
     Route: 061

REACTIONS (3)
  - PRODUCT PACKAGING QUANTITY ISSUE [None]
  - HAIR COLOUR CHANGES [None]
  - PAIN [None]
